FAERS Safety Report 17418023 (Version 4)
Quarter: 2020Q2

REPORT INFORMATION
  Report Type: Report from Study
  Country: None (occurrence: ES)
  Receive Date: 20200213
  Receipt Date: 20200403
  Transmission Date: 20200713
  Serious: Yes (Other)
  Sender: FDA-Public Use
  Company Number: ES-ABBVIE-20K-144-3272636-00

PATIENT
  Sex: Female

DRUGS (1)
  1. DUODOPA [Suspect]
     Active Substance: CARBIDOPA\LEVODOPA
     Indication: PARKINSON^S DISEASE
     Route: 050
     Dates: start: 20190705

REACTIONS (7)
  - Constipation [Recovering/Resolving]
  - Weight decreased [Recovering/Resolving]
  - Stomatitis [Recovering/Resolving]
  - Abdominal pain [Recovering/Resolving]
  - Discomfort [Recovering/Resolving]
  - Hypophagia [Recovering/Resolving]
  - Unevaluable event [Unknown]

NARRATIVE: CASE EVENT DATE: 2020
